FAERS Safety Report 5144307-1 (Version None)
Quarter: 2006Q4

REPORT INFORMATION
  Report Type: 
  Country: None (occurrence: None)
  Receive Date: 20061030
  Receipt Date: 20061023
  Transmission Date: 20070319
  Serious: Yes (Death, Hospitalization)
  Sender: FDA-Public Use
  Company Number: 163-20785-06020403

PATIENT
  Age: 81 Year
  Sex: Male

DRUGS (1)
  1. THALOMID (THALIDOMIDE) (CAPSULES) [Suspect]
     Indication: MULTIPLE MYELOMA
     Dosage: 100 MG, DAILY, ORAL
     Route: 048
     Dates: start: 20051212

REACTIONS (2)
  - DYSPNOEA [None]
  - FAILURE TO THRIVE [None]
